FAERS Safety Report 5868127-5 (Version None)
Quarter: 2008Q3

REPORT INFORMATION
  Report Type: 
  Country: None (occurrence: None)
  Receive Date: 20080902
  Receipt Date: 20080507
  Transmission Date: 20090109
  Serious: No
  Sender: FDA-Public Use
  Company Number: US-ABBOTT-08P-163-0451438-00

PATIENT
  Sex: Female
  Weight: 70.37 kg

DRUGS (12)
  1. DEPAKOTE ER [Suspect]
     Indication: TRIGEMINAL NEURALGIA
     Route: 048
     Dates: start: 20060701, end: 20070101
  2. DEPAKOTE ER [Suspect]
     Indication: MIGRAINE
     Dates: start: 20070101
  3. PREGABALIN [Concomitant]
     Indication: TRIGEMINAL NEURALGIA
     Dates: start: 20071101
  4. LEVOTHYROXINE SODIUM [Concomitant]
     Indication: HYPOTHYROIDISM
     Dates: start: 19600101
  5. ESTRADIOL [Concomitant]
     Indication: HORMONE REPLACEMENT THERAPY
  6. EFFEXOR XR [Concomitant]
     Indication: TRIGEMINAL NEURALGIA
     Dates: start: 20080301
  7. LISINOPRIL [Concomitant]
     Indication: BLOOD PRESSURE MANAGEMENT
  8. LOVASTATIN [Concomitant]
     Indication: BLOOD CHOLESTEROL ABNORMAL
  9. AXOTAL [Concomitant]
     Indication: PAIN
     Dates: start: 20040101
  10. PROPACET 100 [Concomitant]
     Indication: PAIN
     Dates: start: 20060101
  11. VICODIN [Concomitant]
     Indication: PAIN
     Dates: start: 20060101
  12. DULOXETINE HYDROCHLORIDE [Concomitant]
     Indication: TRIGEMINAL NEURALGIA
     Dates: start: 20060101, end: 20080301

REACTIONS (3)
  - ALOPECIA [None]
  - ANKLE FRACTURE [None]
  - FALL [None]
